FAERS Safety Report 4944778-7 (Version None)
Quarter: 2006Q1

REPORT INFORMATION
  Report Type: 
  Country: None (occurrence: None)
  Receive Date: 20060118
  Receipt Date: 20051011
  Transmission Date: 20060701
  Serious: Yes (Hospitalization)
  Sender: FDA-Public Use
  Company Number: US-JNJFOC-20050800253

PATIENT
  Age: 48 Year
  Sex: Female
  Weight: 68.0396 kg

DRUGS (3)
  1. DOXIL [Suspect]
     Indication: LUNG NEOPLASM MALIGNANT
     Dosage: 57 MG; 70 MG :  INTRAVENOUS
     Route: 042
     Dates: start: 20050707
  2. DOXIL [Suspect]
     Indication: LUNG NEOPLASM MALIGNANT
     Dosage: 57 MG; 70 MG :  INTRAVENOUS
     Route: 042
     Dates: start: 20050728
  3. ALBUTEROL [Concomitant]

REACTIONS (5)
  - BACK PAIN [None]
  - CHEST PAIN [None]
  - DYSPHAGIA [None]
  - FAECES DISCOLOURED [None]
  - PALMAR-PLANTAR ERYTHRODYSAESTHESIA SYNDROME [None]
